FAERS Safety Report 6991834-8 (Version None)
Quarter: 2010Q3

REPORT INFORMATION
  Report Type: 
  Country: None (occurrence: None)
  Receive Date: 20100916
  Receipt Date: 20100916
  Transmission Date: 20110219
  Serious: Yes (Other)
  Sender: FDA-Public Use
  Company Number: None

PATIENT
  Age: 53 Year
  Sex: Female
  Weight: 133.8111 kg

DRUGS (1)
  1. METFORMIN HCL [Suspect]
     Indication: DIABETES MELLITUS
     Dosage: 500 MG 2 PILLS TWICE DAILY BY MOUTH
     Route: 048
     Dates: start: 20100319, end: 20100526

REACTIONS (2)
  - ABDOMINAL DISCOMFORT [None]
  - APPETITE DISORDER [None]
